FAERS Safety Report 23208107 (Version 1)
Quarter: 2023Q4

REPORT INFORMATION
  Report Type: Spontaneous
  Country: CA (occurrence: None)
  Receive Date: 20231121
  Receipt Date: 20231121
  Transmission Date: 20240110
  Serious: Yes (Other)
  Sender: FDA-Public Use
  Company Number: CA-ROCHE-3456381

PATIENT
  Sex: Male

DRUGS (1)
  1. OCREVUS [Suspect]
     Active Substance: OCRELIZUMAB
     Indication: Multiple sclerosis
     Route: 065

REACTIONS (8)
  - Flushing [Unknown]
  - Loss of consciousness [Unknown]
  - Anxiety [Unknown]
  - Fatigue [Unknown]
  - Headache [Unknown]
  - Blood pressure increased [Unknown]
  - Cognitive disorder [Unknown]
  - Feeling abnormal [Unknown]
